FAERS Safety Report 10088301 (Version 4)
Quarter: 2014Q2

REPORT INFORMATION
  Report Type: Spontaneous
  Country: US (occurrence: US)
  Receive Date: 20140421
  Receipt Date: 20140618
  Transmission Date: 20141212
  Serious: Yes (Life-Threatening, Disabling)
  Sender: FDA-Public Use
  Company Number: US-009507513-1404USA010776

PATIENT
  Age: 62 Year
  Sex: Male
  Weight: 72.56 kg

DRUGS (1)
  1. VYTORIN [Suspect]
     Indication: BLOOD CHOLESTEROL INCREASED
     Dosage: 1DF; 1 DAILY 10/40
     Route: 048

REACTIONS (3)
  - Oesophageal carcinoma [Not Recovered/Not Resolved]
  - Oesophageal stenosis [Not Recovered/Not Resolved]
  - Chemotherapy [Unknown]
